FAERS Safety Report 10710632 (Version 2)
Quarter: 2015Q1

REPORT INFORMATION
  Report Type: Spontaneous
  Country: US (occurrence: None)
  Receive Date: 20150112
  Receipt Date: 20150224
  Transmission Date: 20150721
  Serious: Yes (Other)
  Sender: FDA-Public Use
  Company Number: US-H14001-15-00015

PATIENT
  Age: 64 Year
  Sex: Female
  Weight: 75.1 kg

DRUGS (26)
  1. SEVELAMER [Concomitant]
     Active Substance: SEVELAMER
  2. PANTOPRAZOLE [Concomitant]
     Active Substance: PANTOPRAZOLE SODIUM
  3. DOCUSATE [Concomitant]
     Active Substance: DOCUSATE
  4. MICAFUNGIN [Concomitant]
     Active Substance: MICAFUNGIN
  5. PIPERACILLIN [Concomitant]
     Active Substance: PIPERACILLIN
  6. MORPHINE [Concomitant]
     Active Substance: MORPHINE
  7. LASIX [Concomitant]
     Active Substance: FUROSEMIDE
  8. ACETAMINOPHEN (PARACETAMOL) [Concomitant]
     Active Substance: ACETAMINOPHEN
  9. DAUNORUBICIN (DAUNORUBICIN) [Suspect]
     Active Substance: DAUNORUBICIN
     Indication: ACUTE MYELOID LEUKAEMIA
     Dosage: 111 MG, ONCE DAILY ON DAYS 1-3, INTRAVENOUS BOLUS?
     Route: 040
     Dates: start: 20140627, end: 20140629
  10. CYTARABINE. [Suspect]
     Active Substance: CYTARABINE
     Indication: ACUTE MYELOID LEUKAEMIA
     Dosage: 190 MG, ON DAYS 1-7, INTRAVENOUS DRIP
     Route: 041
     Dates: start: 20140624
  11. ONDANSETRON [Concomitant]
     Active Substance: ONDANSETRON
  12. MIRALAX (MACROGOL) [Concomitant]
  13. SENNA [Concomitant]
     Active Substance: SENNA LEAF\SENNOSIDES\SENNOSIDES A AND B
  14. MOXIFLOXACIN [Concomitant]
     Active Substance: MOXIFLOXACIN
  15. CAPTOPRIL. [Concomitant]
     Active Substance: CAPTOPRIL
  16. LACTULOSE. [Concomitant]
     Active Substance: LACTULOSE
  17. MEROPENEM. [Suspect]
     Active Substance: MEROPENEM
     Indication: PROPHYLAXIS
     Dosage: 3 GM (1 GM, 1 IN 8 HR), INTRAVENOUS (NOT OTHERWISE SPECIFIED)?
     Route: 042
     Dates: start: 20140712, end: 20140729
  18. VANCOMYCIN [Concomitant]
     Active Substance: VANCOMYCIN
  19. POTASSIUM CHLORIDE. [Concomitant]
     Active Substance: POTASSIUM CHLORIDE
  20. OXYCODONE [Concomitant]
     Active Substance: OXYCODONE
  21. LOPERAMIDE [Concomitant]
     Active Substance: LOPERAMIDE
  22. BLINDED STUDY DRUG [Suspect]
     Active Substance: INVESTIGATIONAL PRODUCT
     Indication: ACUTE MYELOID LEUKAEMIA
     Dosage: 100 MG (100 MG, 1 IN 1 D), ORAL
     Route: 048
     Dates: start: 20140624
  23. VALTREX (VALACICLOVIR) [Concomitant]
  24. CHOLECALCIFEROL [Concomitant]
     Active Substance: CHOLECALCIFEROL
  25. ALLOPURINOL. [Concomitant]
     Active Substance: ALLOPURINOL
  26. ZOSYN (PIP/TAZO) (INJECTION) (PIPERACILLIN SODIUM, TAZOBACTAM SODIUM) [Concomitant]

REACTIONS (18)
  - Abdominal tenderness [None]
  - Mucosal inflammation [None]
  - Fall [None]
  - Bradycardia [None]
  - Pancreatitis acute [None]
  - Dyskinesia [None]
  - Haematocrit decreased [None]
  - Myoclonus [None]
  - Gastrointestinal haemorrhage [None]
  - Unresponsive to stimuli [None]
  - Melaena [None]
  - Haemoglobin decreased [None]
  - Presyncope [None]
  - Hyperhidrosis [None]
  - Loss of consciousness [None]
  - Fatigue [None]
  - Duodenitis [None]
  - Arteriovenous malformation [None]

NARRATIVE: CASE EVENT DATE: 20140712
